FAERS Safety Report 22144431 (Version 1)
Quarter: 2023Q1

REPORT INFORMATION
  Report Type: Report from Study
  Country: CA (occurrence: CA)
  Receive Date: 20230328
  Receipt Date: 20230328
  Transmission Date: 20230418
  Serious: Yes (Other)
  Sender: FDA-Public Use
  Company Number: CA-JNJFOC-20220913195

PATIENT
  Age: 16 Year
  Sex: Male
  Weight: 68 kg

DRUGS (2)
  1. REMICADE [Suspect]
     Active Substance: INFLIXIMAB
     Indication: Takayasu^s arteritis
     Dosage: 550 MG FOR 0,2,6 THEN EVERY 8 WEEKS
     Route: 042
     Dates: start: 20220901
  2. REMICADE [Suspect]
     Active Substance: INFLIXIMAB
     Dosage: DOSE INCREASED
     Route: 042

REACTIONS (2)
  - Takayasu^s arteritis [Unknown]
  - Off label use [Unknown]

NARRATIVE: CASE EVENT DATE: 20220901
